FAERS Safety Report 13983346 (Version 1)
Quarter: 2017Q3

REPORT INFORMATION
  Report Type: Spontaneous
  Country: PL (occurrence: PL)
  Receive Date: 20170918
  Receipt Date: 20170918
  Transmission Date: 20171128
  Serious: Yes (Other)
  Sender: FDA-Public Use
  Company Number: PHHY2017PL134080

PATIENT
  Age: 27 Year
  Sex: Female
  Weight: 84 kg

DRUGS (3)
  1. METOCLOPRAMID [Concomitant]
     Active Substance: METOCLOPRAMIDE
     Indication: PRODUCT USED FOR UNKNOWN INDICATION
     Route: 065
  2. RANIC [Suspect]
     Active Substance: RANITIDINE HYDROCHLORIDE
     Indication: PROPHYLAXIS OF NAUSEA AND VOMITING
     Dosage: 50 MG/20ML 0,9% NACL
     Route: 042
     Dates: start: 20170518, end: 20170518
  3. NACL [Concomitant]
     Active Substance: SODIUM CHLORIDE
     Indication: PRODUCT USED FOR UNKNOWN INDICATION
     Dosage: 20 ML, UNK
     Route: 065

REACTIONS (7)
  - Tinnitus [Recovered/Resolved]
  - Fear [Recovered/Resolved]
  - Hyperhidrosis [Recovered/Resolved]
  - Ear discomfort [None]
  - Blood pressure systolic decreased [None]
  - Ear discomfort [Recovered/Resolved]
  - Dyspnoea [Recovered/Resolved]

NARRATIVE: CASE EVENT DATE: 20170518
